FAERS Safety Report 16248932 (Version 1)
Quarter: 2019Q2

REPORT INFORMATION
  Report Type: Spontaneous
  Country: ES (occurrence: ES)
  Receive Date: 20190429
  Receipt Date: 20190429
  Transmission Date: 20190711
  Serious: Yes (Other)
  Sender: FDA-Public Use
  Company Number: ES-ACCORD-124567

PATIENT
  Age: 66 Year
  Sex: Male

DRUGS (6)
  1. ESCITALOPRAM [Suspect]
     Active Substance: ESCITALOPRAM OXALATE
     Indication: SCIATICA
     Dosage: STRENGTH: 10 MG 28 TABLETS, 1/2-0-0
     Route: 048
     Dates: start: 201901, end: 20190223
  2. NEBIVOLOL. [Concomitant]
     Active Substance: NEBIVOLOL
     Dosage: STRENGTH: 5 MG 28 TABLETS
     Route: 048
  3. ACETYLSALICYLIC ACID [Concomitant]
     Active Substance: ASPIRIN
     Dosage: STRENGTH: 100 MG 30 TABLETS
     Route: 048
  4. GABAPENTIN. [Interacting]
     Active Substance: GABAPENTIN
     Indication: SCIATICA
     Dosage: 1-1-1. 0-0-1 1ST WEEK, 2ND WEEK 0-1-1, 1-1-1 3RD WEEK AND CONTINUE TO?FURTHER REVIEW
     Route: 048
     Dates: start: 201901
  5. ZYTRAM BID [Interacting]
     Active Substance: TRAMADOL HYDROCHLORIDE
     Indication: SCIATICA
     Dosage: STRENGTH: 75 MG, 56 TABLETS, 1-0-1. 1ST WEEK 0-0-1, 2ND WEEK 1-0-1 AND CONTINUE UNTIL REVISION
     Route: 048
     Dates: start: 201901
  6. ATORVASTATIN [Concomitant]
     Active Substance: ATORVASTATIN
     Dosage: STRENGTH: 40 MG 28 TABLETS
     Route: 048

REACTIONS (2)
  - Urinary retention [Recovered/Resolved]
  - Drug interaction [Unknown]

NARRATIVE: CASE EVENT DATE: 20190128
